APPROVED DRUG PRODUCT: CEFACLOR
Active Ingredient: CEFACLOR
Strength: EQ 250MG BASE
Dosage Form/Route: CAPSULE;ORAL
Application: A064156 | Product #001
Applicant: RANBAXY PHARMACEUTICALS INC
Approved: Aug 28, 1997 | RLD: No | RS: No | Type: DISCN